FAERS Safety Report 4714618-X (Version None)
Quarter: 2005Q3

REPORT INFORMATION
  Report Type: 
  Country: None (occurrence: None)
  Receive Date: 20050714
  Receipt Date: 20050714
  Transmission Date: 20060218
  Serious: Yes (Other)
  Sender: FDA-Public Use
  Company Number: None

PATIENT
  Sex: Female
  Weight: 61.2356 kg

DRUGS (1)
  1. VYTORIN [Suspect]
     Indication: HYPERLIPIDAEMIA
     Dosage: DAILY ORAL
     Route: 048

REACTIONS (4)
  - FATIGUE [None]
  - LOSS OF LIBIDO [None]
  - MENSTRUAL DISORDER [None]
  - MUSCLE SPASMS [None]
